FAERS Safety Report 23032570 (Version 1)
Quarter: 2023Q4

REPORT INFORMATION
  Report Type: Spontaneous
  Country: CA (occurrence: CA)
  Receive Date: 20231005
  Receipt Date: 20231005
  Transmission Date: 20240109
  Serious: Yes (Disabling)
  Sender: FDA-Public Use
  Company Number: CA-PFIZER INC-202300310780

PATIENT
  Age: 23 Year
  Sex: Male

DRUGS (1)
  1. LEVOFLOXACIN [Suspect]
     Active Substance: LEVOFLOXACIN
     Dosage: UNK

REACTIONS (7)
  - Dysstasia [Recovering/Resolving]
  - Gait disturbance [Recovering/Resolving]
  - Loss of personal independence in daily activities [Recovering/Resolving]
  - Nerve injury [Recovering/Resolving]
  - Pain [Recovering/Resolving]
  - Tendon disorder [Recovering/Resolving]
  - Tendonitis [Recovering/Resolving]
